FAERS Safety Report 23664895 (Version 1)
Quarter: 2024Q1

REPORT INFORMATION
  Report Type: Spontaneous
  Country: CN (occurrence: CN)
  Receive Date: 20240322
  Receipt Date: 20240322
  Transmission Date: 20240409
  Serious: Yes (Other)
  Sender: FDA-Public Use
  Company Number: CN-PFIZER INC-PV202400038248

PATIENT
  Age: 7 Year
  Sex: Male

DRUGS (5)
  1. ZITHROMAX [Suspect]
     Active Substance: AZITHROMYCIN DIHYDRATE
     Indication: Anti-infective therapy
     Dosage: 0.35 G, 1X/DAY
     Route: 048
     Dates: start: 20240303, end: 20240304
  2. AZITHROMYCIN [Suspect]
     Active Substance: AZITHROMYCIN
     Indication: Anti-infective therapy
     Dosage: 0.35 G, 1X/DAY
     Route: 041
     Dates: start: 20240305, end: 20240306
  3. UMIFENOVIR HYDROCHLORIDE [Suspect]
     Active Substance: UMIFENOVIR HYDROCHLORIDE
     Indication: Antiviral treatment
     Dosage: 0.1 G, 3X/DAY
     Route: 048
     Dates: start: 20240303, end: 20240306
  4. COMPOUND PARACETAMOL AND DEXTROMETHORPHAN [Concomitant]
     Indication: Antitussive therapy
     Dosage: 4 ML, 3X/DAY
     Route: 048
     Dates: start: 20240303, end: 20240307
  5. XIAO ER CHAI GUI TUI RE [Concomitant]
     Indication: Antipyresis
     Dosage: 1.5 DF, 4X/DAY
     Route: 048
     Dates: start: 20240303, end: 20240305

REACTIONS (2)
  - Drug eruption [Recovering/Resolving]
  - Rash maculo-papular [Recovering/Resolving]

NARRATIVE: CASE EVENT DATE: 20240307
